FAERS Safety Report 12753822 (Version 1)
Quarter: 2016Q3

REPORT INFORMATION
  Report Type: Spontaneous
  Country: DE (occurrence: DE)
  Receive Date: 20160916
  Receipt Date: 20160916
  Transmission Date: 20161109
  Serious: Yes (Hospitalization, Other)
  Sender: FDA-Public Use
  Company Number: GXKR2016DE004241

PATIENT
  Age: 75 Year
  Sex: Female

DRUGS (1)
  1. LEVOFLOXACIN - 1 A PHARMA [Suspect]
     Active Substance: LEVOFLOXACIN
     Indication: BRONCHITIS
     Dosage: 1 DF/DAY
     Route: 048
     Dates: start: 20160129, end: 20160203

REACTIONS (12)
  - Headache [Unknown]
  - Nervousness [Not Recovered/Not Resolved]
  - Hyponatraemia [Not Recovered/Not Resolved]
  - Depressed mood [Not Recovered/Not Resolved]
  - Feeling of body temperature change [Unknown]
  - Anxiety disorder [Not Recovered/Not Resolved]
  - Hypertension [Unknown]
  - Tachycardia [Unknown]
  - Mental disorder [Not Recovered/Not Resolved]
  - Agitation [Not Recovered/Not Resolved]
  - Tremor [Not Recovered/Not Resolved]
  - Dizziness [Not Recovered/Not Resolved]

NARRATIVE: CASE EVENT DATE: 20160203
